FAERS Safety Report 12877649 (Version 8)
Quarter: 2017Q4

REPORT INFORMATION
  Report Type: Spontaneous
  Country: US (occurrence: US)
  Receive Date: 20161024
  Receipt Date: 20171215
  Transmission Date: 20180320
  Serious: Yes (Hospitalization, Other)
  Sender: FDA-Public Use
  Company Number: US-PFIZER INC-2016489240

PATIENT
  Age: 73 Year
  Sex: Female
  Weight: 92.97 kg

DRUGS (6)
  1. FASLODEX [Concomitant]
     Active Substance: FULVESTRANT
     Dosage: UNK
  2. IBRANCE [Suspect]
     Active Substance: PALBOCICLIB
     Dosage: 125 MG, CYCLIC, (DAY 1-21 Q 28 DAYS)
     Route: 048
  3. IBRANCE [Suspect]
     Active Substance: PALBOCICLIB
     Dosage: 125 MG, CYCLIC (D1-D21 Q28 DAYS)
     Route: 048
     Dates: end: 20161206
  4. IBRANCE [Suspect]
     Active Substance: PALBOCICLIB
     Dosage: 125 MG, CYCLIC, (DAY 1-21 Q 28 DAYS)
     Route: 048
  5. IBRANCE [Suspect]
     Active Substance: PALBOCICLIB
     Dosage: 125 MG, CYCLIC, (DAY 1-21 Q 28 DAYS)
     Route: 048
  6. IBRANCE [Suspect]
     Active Substance: PALBOCICLIB
     Indication: BREAST CANCER METASTATIC
     Dosage: 125 MG, CYCLIC, (DAYS 1-21 Q 28 DAYS)
     Route: 048
     Dates: start: 20161017

REACTIONS (14)
  - Cerebral thrombosis [Unknown]
  - Tumour marker increased [Unknown]
  - Oropharyngeal pain [Unknown]
  - Confusional state [Unknown]
  - Neutropenia [Unknown]
  - Stomatitis [Unknown]
  - Insomnia [Unknown]
  - Fatigue [Unknown]
  - Drug dose omission [Unknown]
  - Urinary tract infection [Unknown]
  - Bronchitis [Unknown]
  - White blood cell count decreased [Unknown]
  - Hyperhidrosis [Unknown]
  - Memory impairment [Unknown]

NARRATIVE: CASE EVENT DATE: 201610
